FAERS Safety Report 25061719 (Version 1)
Quarter: 2025Q1

REPORT INFORMATION
  Report Type: Spontaneous
  Country: AU (occurrence: AU)
  Receive Date: 20250311
  Receipt Date: 20250311
  Transmission Date: 20250409
  Serious: Yes (Other)
  Sender: CSL BEHRING
  Company Number: AU-BEH-2025198470

PATIENT
  Age: 78 Year
  Sex: Male

DRUGS (1)
  1. HUMAN IMMUNOGLOBULIN G [Suspect]
     Active Substance: HUMAN IMMUNOGLOBULIN G
     Indication: Chronic lymphocytic leukaemia
     Route: 042

REACTIONS (3)
  - Thrombocytopenia [Unknown]
  - Transfusion reaction [Unknown]
  - Petechiae [Unknown]

NARRATIVE: CASE EVENT DATE: 20241223
